FAERS Safety Report 8973474 (Version 1)
Quarter: 2012Q4

REPORT INFORMATION
  Report Type: 
  Country: US (occurrence: US)
  Receive Date: 20121218
  Receipt Date: 20121218
  Transmission Date: 20130627
  Serious: No
  Sender: FDA-Public Use
  Company Number: US-BRISTOL-MYERS SQUIBB COMPANY-16819591

PATIENT
  Age: 69 Year
  Sex: Female
  Weight: 90.7 kg

DRUGS (1)
  1. ABILIFY TABS 2 MG [Suspect]
     Dosage: 2mg tab tab taken half for 1mg,may have been about 3 years ago

REACTIONS (2)
  - Arthritis [Unknown]
  - Wrong technique in drug usage process [Unknown]
